FAERS Safety Report 10045337 (Version 4)
Quarter: 2014Q2

REPORT INFORMATION
  Report Type: Report from Study
  Country: US (occurrence: US)
  Receive Date: 20140328
  Receipt Date: 20140623
  Transmission Date: 20141212
  Serious: Yes (Other)
  Sender: FDA-Public Use
  Company Number: US-JNJFOC-20140312655

PATIENT
  Age: 73 Year
  Sex: Female
  Weight: 92.53 kg

DRUGS (18)
  1. XARELTO [Suspect]
     Indication: CEREBROVASCULAR ACCIDENT PROPHYLAXIS
     Route: 048
     Dates: start: 20130624, end: 20140213
  2. XARELTO [Suspect]
     Indication: ATRIAL FIBRILLATION
     Route: 048
     Dates: start: 20130624, end: 20140213
  3. TIKOSYN [Suspect]
     Indication: ATRIAL FIBRILLATION
     Route: 048
     Dates: start: 20120827
  4. TIKOSYN [Suspect]
     Indication: ATRIAL FIBRILLATION
     Route: 048
     Dates: start: 201208, end: 201312
  5. TIKOSYN [Suspect]
     Indication: ATRIAL FIBRILLATION
     Route: 048
     Dates: start: 201312
  6. TIKOSYN [Suspect]
     Indication: CARDIAC DISORDER
     Route: 048
     Dates: start: 201208, end: 201312
  7. TIKOSYN [Suspect]
     Indication: CARDIAC DISORDER
     Route: 048
     Dates: start: 201312
  8. TIKOSYN [Suspect]
     Indication: CARDIAC DISORDER
     Route: 048
     Dates: start: 20120827
  9. LOPRESSOR [Concomitant]
     Indication: ATRIAL FIBRILLATION
     Dosage: HALF A TABLET
     Route: 048
     Dates: start: 20080109
  10. LOPRESSOR [Concomitant]
     Indication: CARDIAC DISORDER
     Dosage: HALF A TABLET
     Route: 048
     Dates: start: 20080109
  11. ZOCOR [Concomitant]
     Indication: BLOOD CHOLESTEROL ABNORMAL
     Route: 048
     Dates: start: 20090604
  12. SYNTHROID [Concomitant]
     Indication: HYPOTHYROIDISM
     Route: 048
     Dates: start: 20080516
  13. RESTASIS [Concomitant]
     Indication: EYE DISORDER
     Dosage: 1 DROP EACH EYE
     Route: 047
  14. PRILOSEC [Concomitant]
     Indication: GASTROOESOPHAGEAL REFLUX DISEASE
     Route: 048
  15. RESTORIL [Concomitant]
     Indication: SLEEP APNOEA SYNDROME
     Route: 048
  16. CALCIUM [Concomitant]
     Dosage: 1200 UNSPECIFIED UNITS
     Route: 065
  17. VITAMIN D [Concomitant]
     Dosage: 2000 UNSPECIFIED UNITS
     Route: 065
  18. LEVOXYL [Concomitant]
     Indication: HYPOTHYROIDISM
     Dosage: 2000 UNSPECIFIED UNITS
     Route: 065
     Dates: start: 20080516

REACTIONS (2)
  - Renal impairment [Recovering/Resolving]
  - Contusion [Recovered/Resolved]
